FAERS Safety Report 15898191 (Version 2)
Quarter: 2019Q2

REPORT INFORMATION
  Report Type: Spontaneous
  Country: US (occurrence: US)
  Receive Date: 20190201
  Receipt Date: 20190416
  Transmission Date: 20190711
  Serious: Yes (Other)
  Sender: FDA-Public Use
  Company Number: US-PFIZER INC-2019015229

PATIENT
  Age: 51 Year
  Sex: Female
  Weight: 61.69 kg

DRUGS (23)
  1. TOPAMAX [Concomitant]
     Active Substance: TOPIRAMATE
     Indication: MIGRAINE
     Dosage: 2 DF, 2X/DAY (2 TABS BY MOUTH 2 (TWO) TIMES DAILY)
     Route: 048
  2. KENALOG [Concomitant]
     Active Substance: TRIAMCINOLONE ACETONIDE
     Dosage: UNK UNK, 2X/DAY
     Route: 061
  3. INDERAL [Concomitant]
     Active Substance: PROPRANOLOL HYDROCHLORIDE
     Dosage: 0.5 MG, 2X/DAY
     Route: 048
  4. XYLOCAINE [Concomitant]
     Active Substance: LIDOCAINE HYDROCHLORIDE
     Indication: PAIN
     Dosage: UNK UNK, AS NEEDED(2 % JELLY, APPLY TOPICALLY THREE TIMES DAILY AS NEEDED )
     Route: 061
  5. LYRICA [Suspect]
     Active Substance: PREGABALIN
     Indication: FIBROMYALGIA
     Dosage: 300 MG, 2X/DAY
     Route: 048
     Dates: start: 20181117, end: 201812
  6. SYMBICORT [Concomitant]
     Active Substance: BUDESONIDE\FORMOTEROL FUMARATE DIHYDRATE
     Dosage: UNK UNK, 2X/DAY(INHALE 2 PUFFS INTO THE LUNGS 2 (TWO) TIMES DAILY, 160-4.5 MCG/ACTUATION INHALER)
  7. CYMBALTA [Concomitant]
     Active Substance: DULOXETINE HYDROCHLORIDE
     Dosage: 60 MG, 1X/DAY
     Route: 048
  8. VOLTAREN [Concomitant]
     Active Substance: DICLOFENAC SODIUM
     Dosage: UNK
  9. GLYCOLAX [Concomitant]
     Active Substance: POLYETHYLENE GLYCOL 3350
     Indication: CONSTIPATION
     Dosage: 17 G, AS NEEDED(3 (THREE) TIMES DAILY AS NEEDED )
     Route: 048
  10. ZOFRAN [Concomitant]
     Active Substance: ONDANSETRON HYDROCHLORIDE
     Indication: NAUSEA
     Dosage: 4 MG, AS NEEDED(1 TAB BY MOUTH EVERY 8 (EIGHT) HOURS AS NEEDED)
     Route: 048
  11. ZANAFLEX [Concomitant]
     Active Substance: TIZANIDINE HYDROCHLORIDE
     Dosage: 4 MG, AS NEEDED(4 MG BY MOUTH EVERY 6 (SIX) HOURS)
     Route: 048
  12. LYRICA [Suspect]
     Active Substance: PREGABALIN
     Dosage: 300 MG, 2X/DAY
     Route: 048
     Dates: start: 20190108, end: 20190228
  13. COZAAR [Concomitant]
     Active Substance: LOSARTAN POTASSIUM
     Dosage: 50 MG, DAILY (THEN INCREASE TO 1 TAB DAILY)
  14. ZOSTRIX ORIGINAL STRENGTH [Concomitant]
     Active Substance: CAPSAICIN
     Dosage: UNK UNK, 3X/DAY
     Route: 061
  15. PERCOCET [Concomitant]
     Active Substance: ACETAMINOPHEN\OXYCODONE HYDROCHLORIDE
     Indication: PAIN
     Dosage: UNK, AS NEEDED (OXYCODONE HYDROCHLORIDE 5MG, PARACETAMOL 325MG, EVERY 4 HOURS)
     Route: 048
  16. ALBUTEROL SULFATE. [Concomitant]
     Active Substance: ALBUTEROL SULFATE
     Indication: DYSPNOEA
     Dosage: UNK, AS NEEDED (2 PUFFS INTO THE LUNGS EVERY 4 (FOUR) HOURS)
  17. CYMBALTA [Concomitant]
     Active Substance: DULOXETINE HYDROCHLORIDE
     Dosage: 60 MG, UNK (TAKE WITH 60 MG CAPS FOR A TOTAL OF 90 MG/DAY)
  18. CHRONULAC [Concomitant]
     Active Substance: LACTULOSE
     Indication: CONSTIPATION
     Dosage: 15 ML, AS NEEDED(15 ML BY MOUTH 3 (THREE) TIMES DAILY AS NEEDED)
     Route: 048
  19. VITAMIN D3 [Concomitant]
     Active Substance: CHOLECALCIFEROL
     Dosage: 1 DF, 1X/DAY (TAKE 1 CAP)
     Route: 048
  20. ZANTAC [Concomitant]
     Active Substance: RANITIDINE HYDROCHLORIDE
     Indication: DYSPEPSIA
     Dosage: 150 MG, AS NEEDED(ONE TABLET BY MOUTH TWICE DAILY AS NEEDED)
     Route: 048
  21. COZAAR [Concomitant]
     Active Substance: LOSARTAN POTASSIUM
     Dosage: UNK UNK, WEEKLY (TAKE 1/2 TAB X 1 WK)
  22. FERROUS SULFATE. [Concomitant]
     Active Substance: FERROUS SULFATE
     Dosage: 325 MG, 1X/DAY (TAKE 1 TAB BY MOUTH ONCE DAILY WITH BREAKFAST)
     Route: 048
  23. EPIPEN [Concomitant]
     Active Substance: EPINEPHRINE
     Indication: ANAPHYLACTIC REACTION
     Dosage: 0.3 ML, AS NEEDED
     Route: 030

REACTIONS (15)
  - Feeling cold [Unknown]
  - Muscle disorder [Unknown]
  - Dizziness [Recovered/Resolved]
  - Peripheral swelling [Recovered/Resolved]
  - Crying [Unknown]
  - Hallucination, visual [Recovered/Resolved]
  - Loss of personal independence in daily activities [Unknown]
  - Hypoaesthesia [Unknown]
  - Cartilage injury [Unknown]
  - Confusional state [Unknown]
  - Hormone level abnormal [Unknown]
  - Malaise [Unknown]
  - Carpal tunnel syndrome [Recovering/Resolving]
  - Fatigue [Unknown]
  - Circumstance or information capable of leading to medication error [Unknown]

NARRATIVE: CASE EVENT DATE: 20190110
